FAERS Safety Report 5959599-6 (Version None)
Quarter: 2008Q4

REPORT INFORMATION
  Report Type: 
  Country: None (occurrence: None)
  Receive Date: 20081118
  Receipt Date: 20081107
  Transmission Date: 20090506
  Serious: Yes (Life-Threatening, Hospitalization)
  Sender: FDA-Public Use
  Company Number: 2006-01449

PATIENT
  Age: 63 Year
  Sex: 0

DRUGS (3)
  1. VELCADE [Suspect]
     Indication: MULTIPLE MYELOMA
     Dates: start: 20060526, end: 20060618
  2. DEXAMETHASONE TAB [Suspect]
     Indication: MULTIPLE MYELOMA
     Dates: end: 20060618
  3. DOXORUBICIN HCL [Suspect]
     Indication: MULTIPLE MYELOMA
     Dosage: UNK
     Dates: start: 20060526, end: 20060618

REACTIONS (10)
  - ATELECTASIS [None]
  - BLOOD CULTURE POSITIVE [None]
  - DIVERTICULUM INTESTINAL [None]
  - KLEBSIELLA INFECTION [None]
  - PNEUMONIA KLEBSIELLA [None]
  - PNEUMONIA PARAINFLUENZAE VIRAL [None]
  - PROTEUS INFECTION [None]
  - RESPIRATORY FAILURE [None]
  - SEPSIS [None]
  - UPPER GASTROINTESTINAL HAEMORRHAGE [None]
